FAERS Safety Report 5526385-0 (Version None)
Quarter: 2007Q4

REPORT INFORMATION
  Report Type: 
  Country: None (occurrence: None)
  Receive Date: 20071127
  Receipt Date: 20071126
  Transmission Date: 20080405
  Serious: Yes (Other)
  Sender: FDA-Public Use
  Company Number: US-BRISTOL-MYERS SQUIBB COMPANY-13993969

PATIENT
  Sex: Female

DRUGS (2)
  1. PRAVACHOL [Suspect]
  2. LIPITOR [Suspect]

REACTIONS (3)
  - ABDOMINAL DISCOMFORT [None]
  - CEREBROVASCULAR ACCIDENT [None]
  - MYALGIA [None]
